FAERS Safety Report 6715339-4 (Version None)
Quarter: 2010Q2

REPORT INFORMATION
  Report Type: 
  Country: None (occurrence: None)
  Receive Date: 20100507
  Receipt Date: 20100423
  Transmission Date: 20101027
  Serious: Yes (Hospitalization, Other)
  Sender: FDA-Public Use
  Company Number: US-ELI_LILLY_AND_COMPANY-US200910007859

PATIENT
  Age: 84 Year
  Sex: Female

DRUGS (3)
  1. FORTEO [Suspect]
     Indication: OSTEOPOROSIS
     Dosage: 20 UG, UNK
     Dates: start: 20090501, end: 20091001
  2. VITAMIN D [Concomitant]
     Dosage: UNK, UNK
  3. VITAMIN C [Concomitant]

REACTIONS (13)
  - BLOOD TEST ABNORMAL [None]
  - BRONCHITIS [None]
  - DYSPNOEA [None]
  - FALL [None]
  - GASTROINTESTINAL TUBE INSERTION [None]
  - HAEMOGLOBIN DECREASED [None]
  - MOVEMENT DISORDER [None]
  - OXYGEN SATURATION DECREASED [None]
  - RESTLESS LEGS SYNDROME [None]
  - TREMOR [None]
  - VITAMIN D DECREASED [None]
  - VITAMIN E DECREASED [None]
  - VITAMIN K DECREASED [None]
